FAERS Safety Report 6395429-9 (Version None)
Quarter: 2009Q4

REPORT INFORMATION
  Report Type: 
  Country: None (occurrence: None)
  Receive Date: 20091009
  Receipt Date: 20091008
  Transmission Date: 20100525
  Serious: Yes (Hospitalization, Disabling, Other)
  Sender: FDA-Public Use
  Company Number: US-PFIZER INC-2009212756

PATIENT
  Sex: Female

DRUGS (3)
  1. ATORVASTATIN CALCIUM [Suspect]
  2. CADUET [Suspect]
  3. LYRICA [Suspect]

REACTIONS (5)
  - CARDIAC OPERATION [None]
  - DIABETES MELLITUS [None]
  - DISABILITY [None]
  - HEPATIC CYST [None]
  - TRANSIENT ISCHAEMIC ATTACK [None]
